FAERS Safety Report 17049009 (Version 1)
Quarter: 2019Q4

REPORT INFORMATION
  Report Type: Spontaneous
  Country: US (occurrence: US)
  Receive Date: 20191119
  Receipt Date: 20191119
  Transmission Date: 20200122
  Serious: Yes (Life-Threatening, Hospitalization, Other)
  Sender: FDA-Public Use
  Company Number: None

PATIENT
  Age: 71 Year
  Sex: Male

DRUGS (1)
  1. TRESIBA [Suspect]
     Active Substance: INSULIN DEGLUDEC
     Dosage: 10 UNITS DAILY, HS SC
     Dates: start: 20170118, end: 20180124

REACTIONS (6)
  - Kidney fibrosis [None]
  - Renal impairment [None]
  - Glomerulosclerosis [None]
  - Renal tubular injury [None]
  - Arteriosclerosis [None]
  - Renal tubular atrophy [None]
